FAERS Safety Report 9844866 (Version 1)
Quarter: 2014Q1

REPORT INFORMATION
  Report Type: Spontaneous
  Country: US (occurrence: None)
  Receive Date: 20140122
  Receipt Date: 20140122
  Transmission Date: 20141002
  Serious: Yes (Death)
  Sender: FDA-Public Use
  Company Number: B0960110A

PATIENT
  Age: 26 Year
  Sex: 0

DRUGS (4)
  1. AMLODIPINE [Suspect]
  2. METOPROLOL [Suspect]
  3. LISINOPRIL [Suspect]
  4. SALBUTAMOL SULPHATE [Suspect]

REACTIONS (1)
  - Completed suicide [None]
